FAERS Safety Report 12089935 (Version 1)
Quarter: 2016Q1

REPORT INFORMATION
  Report Type: Spontaneous
  Country: US (occurrence: US)
  Receive Date: 20160218
  Receipt Date: 20160218
  Transmission Date: 20160526
  Serious: No
  Sender: FDA-Public Use
  Company Number: US-HORIZON-PEN-0048-2016

PATIENT
  Sex: Male

DRUGS (1)
  1. PENNSAID [Suspect]
     Active Substance: DICLOFENAC SODIUM
     Route: 061

REACTIONS (2)
  - Off label use [Unknown]
  - Intercepted drug administration error [Unknown]

NARRATIVE: CASE EVENT DATE: 20160211
